FAERS Safety Report 17772844 (Version 1)
Quarter: 2020Q2

REPORT INFORMATION
  Report Type: Spontaneous
  Country: US (occurrence: US)
  Receive Date: 20200512
  Receipt Date: 20200512
  Transmission Date: 20200714
  Serious: Yes (Other)
  Sender: FDA-Public Use
  Company Number: NVSC2020US126412

PATIENT
  Sex: Female
  Weight: 56 kg

DRUGS (1)
  1. KYMRIAH [Suspect]
     Active Substance: TISAGENLECLEUCEL
     Indication: ACUTE LYMPHOCYTIC LEUKAEMIA
     Dosage: 19 ML (ONE SINGLE DOSE) (INTRAVENOUS- INTO BLOODSTREAM VIA VEIN)
     Route: 042

REACTIONS (1)
  - B-lymphocyte count abnormal [Unknown]
